FAERS Safety Report 21050668 (Version 10)
Quarter: 2023Q2

REPORT INFORMATION
  Report Type: Report from Study
  Country: US (occurrence: US)
  Receive Date: 20220707
  Receipt Date: 20230513
  Transmission Date: 20230722
  Serious: No
  Sender: FDA-Public Use
  Company Number: US-NOVARTISTESTPH-NVSC2022US153609

PATIENT
  Sex: Male

DRUGS (3)
  1. COSENTYX [Suspect]
     Active Substance: SECUKINUMAB
     Indication: Psoriasis
     Dosage: 300 MG
     Route: 058
  2. COSENTYX [Suspect]
     Active Substance: SECUKINUMAB
     Dosage: 300 MG (COMPLETED LOADING DOSES)
     Route: 058
  3. COSENTYX [Suspect]
     Active Substance: SECUKINUMAB
     Dosage: 300 MG, QMO, (EVERY 4 WEEKS)
     Route: 058
     Dates: start: 20220725

REACTIONS (11)
  - COVID-19 [Unknown]
  - Anosmia [Not Recovered/Not Resolved]
  - Ageusia [Recovered/Resolved]
  - Arthralgia [Unknown]
  - Memory impairment [Unknown]
  - Pain in extremity [Unknown]
  - Back pain [Not Recovered/Not Resolved]
  - Psoriasis [Unknown]
  - Skin discolouration [Unknown]
  - Erythema [Unknown]
  - Nasopharyngitis [Unknown]
